FAERS Safety Report 9913918 (Version 2)
Quarter: 2014Q1

REPORT INFORMATION
  Report Type: Spontaneous
  Country: US (occurrence: US)
  Receive Date: 20140220
  Receipt Date: 20140220
  Transmission Date: 20141002
  Serious: Yes (Other)
  Sender: FDA-Public Use
  Company Number: US-NOVOPROD-394760

PATIENT
  Age: 46 Year
  Sex: Female
  Weight: 80.73 kg

DRUGS (6)
  1. VICTOZA [Suspect]
     Indication: TYPE 2 DIABETES MELLITUS
     Dosage: 1.8 MG DAILY
     Route: 058
     Dates: start: 2011, end: 20131204
  2. VICTOZA [Suspect]
     Dosage: UNK
     Route: 058
  3. PREDNISONE [Suspect]
     Indication: ENDODONTIC PROCEDURE
     Dosage: UNKNOWN
     Route: 048
     Dates: start: 20131112, end: 20131112
  4. LIDOCAINE [Suspect]
     Indication: ENDODONTIC PROCEDURE
     Dosage: UNKNOWN
     Dates: start: 20131112, end: 20131112
  5. EPINEPHRINE [Suspect]
     Indication: ENDODONTIC PROCEDURE
     Dosage: UNKNOWN
     Dates: start: 20131112, end: 20131112
  6. LIDOCAINE [Suspect]
     Indication: PRODUCT USED FOR UNKNOWN INDICATION
     Dosage: UNKNOWN
     Dates: start: 20131118, end: 20131118

REACTIONS (5)
  - Clostridium difficile colitis [Recovered/Resolved]
  - Nausea [Recovered/Resolved]
  - Dysgeusia [Recovered/Resolved]
  - Decreased appetite [Recovered/Resolved]
  - Feeling of body temperature change [Recovered/Resolved]
